FAERS Safety Report 9753876 (Version 2)
Quarter: 2013Q4

REPORT INFORMATION
  Report Type: Spontaneous
  Country: US (occurrence: US)
  Receive Date: 20131213
  Receipt Date: 20131213
  Transmission Date: 20140711
  Serious: Yes (Hospitalization)
  Sender: FDA-Public Use
  Company Number: US-GILEAD-2010-0027558

PATIENT
  Sex: Female

DRUGS (14)
  1. LETAIRIS [Suspect]
     Indication: PULMONARY ARTERIAL HYPERTENSION
     Route: 048
     Dates: start: 20100210
  2. LETAIRIS [Suspect]
     Route: 048
     Dates: start: 20080728, end: 20100209
  3. FLOLAN [Concomitant]
  4. WARFARIN [Concomitant]
  5. DIGOXIN [Concomitant]
  6. LASIX [Concomitant]
  7. SPIRONOLACTONE [Concomitant]
  8. LEVOTHYROXINE [Concomitant]
  9. NEURONTIN [Concomitant]
  10. METHADONE [Concomitant]
  11. SERTRALINE [Concomitant]
  12. BUPROPION [Concomitant]
  13. ZOFRAN [Concomitant]
  14. KCL [Concomitant]

REACTIONS (2)
  - Pulmonary arterial hypertension [Unknown]
  - Anaemia [Recovering/Resolving]
